FAERS Safety Report 22897348 (Version 3)
Quarter: 2024Q1

REPORT INFORMATION
  Report Type: Report from Study
  Country: US (occurrence: US)
  Receive Date: 20230902
  Receipt Date: 20240206
  Transmission Date: 20240410
  Serious: Yes (Other)
  Sender: FDA-Public Use
  Company Number: US-TEVA-2023-US-2905090

PATIENT
  Age: 63 Year
  Sex: Male

DRUGS (9)
  1. AUSTEDO [Suspect]
     Active Substance: DEUTETRABENAZINE
     Indication: Huntington^s disease
     Dosage: UNKNOWN TWICE A DAY
     Route: 048
     Dates: start: 20230509
  2. AUSTEDO [Suspect]
     Active Substance: DEUTETRABENAZINE
     Indication: Huntington^s disease
     Route: 048
     Dates: start: 202307
  3. AUSTEDO [Suspect]
     Active Substance: DEUTETRABENAZINE
     Indication: Huntington^s disease
     Route: 048
     Dates: start: 202307
  4. AUSTEDO [Suspect]
     Active Substance: DEUTETRABENAZINE
     Indication: Huntington^s disease
     Dosage: DOSAGE TEXT: ONCE A DAY
     Route: 048
     Dates: start: 2023
  5. AUSTEDO [Suspect]
     Active Substance: DEUTETRABENAZINE
     Indication: Huntington^s disease
     Dosage: DOSAGE TEXT: TWICE A DAY
     Route: 048
     Dates: start: 2023
  6. AUSTEDO [Suspect]
     Active Substance: DEUTETRABENAZINE
     Indication: Huntington^s disease
     Route: 048
     Dates: start: 20230621
  7. AUSTEDO [Suspect]
     Active Substance: DEUTETRABENAZINE
     Indication: Huntington^s disease
     Route: 048
  8. AUSTEDO XR [Suspect]
     Active Substance: DEUTETRABENAZINE
     Indication: Huntington^s disease
     Route: 065
     Dates: start: 20230609, end: 2023
  9. FLOMAX [Concomitant]
     Active Substance: TAMSULOSIN HYDROCHLORIDE
     Indication: Product used for unknown indication
     Route: 065

REACTIONS (15)
  - Myocardial infarction [Unknown]
  - Tremor [Unknown]
  - Heart rate increased [Unknown]
  - Gait disturbance [Unknown]
  - Adverse event [Unknown]
  - Panic attack [Recovering/Resolving]
  - Drug intolerance [Unknown]
  - Balance disorder [Unknown]
  - Palpitations [Unknown]
  - Anxiety [Unknown]
  - Feeling jittery [Unknown]
  - Product prescribing error [Unknown]
  - Memory impairment [Unknown]
  - Nervousness [Not Recovered/Not Resolved]
  - Chorea [Unknown]

NARRATIVE: CASE EVENT DATE: 20230101
